FAERS Safety Report 4686921-3 (Version None)
Quarter: 2005Q2

REPORT INFORMATION
  Report Type: 
  Country: None (occurrence: None)
  Receive Date: 20050608
  Receipt Date: 20050524
  Transmission Date: 20051028
  Serious: Yes (Hospitalization)
  Sender: FDA-Public Use
  Company Number: 2005079059

PATIENT
  Age: 46 Year
  Sex: Male

DRUGS (6)
  1. DETROL LA [Suspect]
     Indication: BLADDER DISORDER
     Dates: start: 20050501, end: 20050503
  2. DETROL LA [Suspect]
     Indication: MICTURITION URGENCY
     Dates: start: 20050501, end: 20050503
  3. INTERFERON (INTERFERON) [Suspect]
     Indication: MULTIPLE SCLEROSIS
     Dosage: 1 IN 2 D, SUBCUTANEOUS
     Route: 058
     Dates: start: 20050401
  4. EFFEXOR [Concomitant]
  5. PROVIGIL [Concomitant]
  6. BACLOFEN [Concomitant]

REACTIONS (6)
  - BRADYCARDIA [None]
  - DIZZINESS [None]
  - HYPERTENSION [None]
  - HYPOTENSION [None]
  - LOSS OF CONSCIOUSNESS [None]
  - NAUSEA [None]
